FAERS Safety Report 10426668 (Version 1)
Quarter: 2014Q3

REPORT INFORMATION
  Report Type: Report from Study
  Country: LB (occurrence: LB)
  Receive Date: 20140903
  Receipt Date: 20140903
  Transmission Date: 20150326
  Serious: Yes (Hospitalization)
  Sender: FDA-Public Use
  Company Number: LB-SA-2014SA117306

PATIENT
  Age: 75 Year
  Sex: Male

DRUGS (8)
  1. DIAMICRON [Suspect]
     Active Substance: GLICLAZIDE
     Indication: DIABETES MELLITUS
     Route: 048
  2. EXFORGE [Concomitant]
     Active Substance: AMLODIPINE BESYLATE\VALSARTAN
     Route: 048
  3. ASPICOT [Concomitant]
     Active Substance: ASPIRIN
     Route: 048
  4. INEGY [Concomitant]
     Active Substance: EZETIMIBE\SIMVASTATIN
     Route: 048
  5. GLUCOPHAGE [Suspect]
     Active Substance: METFORMIN HYDROCHLORIDE
     Indication: DIABETES MELLITUS
     Route: 048
  6. SOLOSTAR [Concomitant]
     Active Substance: DEVICE
     Dates: start: 201406
  7. CONCOR [Concomitant]
     Active Substance: BISOPROLOL FUMARATE
     Route: 048
  8. LANTUS SOLOSTAR [Suspect]
     Active Substance: INSULIN GLARGINE
     Indication: DIABETES MELLITUS
     Dosage: DOSE:20 UNIT(S)
     Route: 058
     Dates: start: 201406

REACTIONS (3)
  - Bladder disorder [Not Recovered/Not Resolved]
  - Infection [Not Recovered/Not Resolved]
  - Hyperglycaemia [Recovering/Resolving]

NARRATIVE: CASE EVENT DATE: 201406
